FAERS Safety Report 23089783 (Version 1)
Quarter: 2023Q4

REPORT INFORMATION
  Report Type: Spontaneous
  Country: CN (occurrence: CN)
  Receive Date: 20231020
  Receipt Date: 20231020
  Transmission Date: 20240110
  Serious: Yes (Other)
  Sender: FDA-Public Use
  Company Number: CN-JNJFOC-20231050008

PATIENT

DRUGS (3)
  1. IBUPROFEN [Suspect]
     Active Substance: IBUPROFEN
     Indication: Pyrexia
     Route: 048
  2. ACETAMINOPHEN [Suspect]
     Active Substance: ACETAMINOPHEN
     Indication: Pyrexia
     Route: 048
  3. INDOMETHACIN [Suspect]
     Active Substance: INDOMETHACIN
     Indication: Pyrexia
     Dosage: ROUTE: TRANS-ANAL
     Route: 065

REACTIONS (13)
  - Bacteraemia [Unknown]
  - Pneumothorax [Unknown]
  - Sepsis [Unknown]
  - Arrhythmia [Unknown]
  - Haematological infection [Unknown]
  - Thrombosis [Unknown]
  - Off label use [Unknown]
  - Renal failure [Unknown]
  - Blood creatine phosphokinase increased [Unknown]
  - Hyperglycaemia [Unknown]
  - Coagulopathy [Unknown]
  - Vasospasm [Unknown]
  - Anaemia [Unknown]
